FAERS Safety Report 7623369-3 (Version None)
Quarter: 2011Q3

REPORT INFORMATION
  Report Type: 
  Country: None (occurrence: None)
  Receive Date: 20110720
  Receipt Date: 20110705
  Transmission Date: 20111222
  Serious: Yes (Hospitalization)
  Sender: FDA-Public Use
  Company Number: NL-SANOFI-AVENTIS-2011SA044451

PATIENT
  Age: 81 Year
  Sex: Male
  Weight: 73 kg

DRUGS (9)
  1. DIURETICS [Concomitant]
     Dates: end: 20110408
  2. DIURETICS [Concomitant]
     Dates: end: 20110411
  3. ALLOPURINOL [Concomitant]
     Dates: end: 20110411
  4. ATORVASTATIN [Concomitant]
  5. DRONEDARONE HCL [Suspect]
     Indication: ATRIAL FIBRILLATION
     Route: 048
     Dates: start: 20110404, end: 20110410
  6. ACENOCOUMAROL [Concomitant]
     Dosage: 7MG WEEKLY
  7. CARVEDILOL [Concomitant]
  8. BUMETANIDE [Concomitant]
  9. MICARDIS [Concomitant]
     Dates: end: 20110411

REACTIONS (2)
  - CARDIAC FAILURE [None]
  - SYNCOPE [None]
